FAERS Safety Report 5838654-5 (Version None)
Quarter: 2008Q3

REPORT INFORMATION
  Report Type: 
  Country: None (occurrence: None)
  Receive Date: 20080808
  Receipt Date: 20080729
  Transmission Date: 20090109
  Serious: Yes (Other)
  Sender: FDA-Public Use
  Company Number: US-MERCK-0706USA00823

PATIENT
  Age: 46 Year
  Sex: Female
  Weight: 75 kg

DRUGS (4)
  1. FOSAMAX [Suspect]
     Indication: RHEUMATOID ARTHRITIS
     Route: 048
     Dates: start: 20020426, end: 20050606
  2. METHOTREXATE [Concomitant]
     Indication: RHEUMATOID ARTHRITIS
     Route: 065
     Dates: start: 19970101
  3. HUMIRA [Concomitant]
     Indication: RHEUMATOID ARTHRITIS
     Route: 065
     Dates: end: 20060901
  4. [THERAPY UNSPECIFIED] [Concomitant]
     Indication: RHEUMATOID ARTHRITIS
     Route: 065
     Dates: start: 19860101

REACTIONS (21)
  - ACUTE SINUSITIS [None]
  - COLONIC POLYP [None]
  - DEAFNESS [None]
  - GINGIVAL BLEEDING [None]
  - GINGIVAL DISORDER [None]
  - HYPERSENSITIVITY [None]
  - IMPAIRED HEALING [None]
  - INJURY [None]
  - LARYNGITIS [None]
  - LOBAR PNEUMONIA [None]
  - OEDEMA MOUTH [None]
  - ORAL INFECTION [None]
  - OSTEONECROSIS [None]
  - OSTEOPENIA [None]
  - OSTEOPOROSIS [None]
  - PAIN [None]
  - RESORPTION BONE INCREASED [None]
  - SYNOVITIS [None]
  - TINNITUS [None]
  - TOOTH FRACTURE [None]
  - UPPER RESPIRATORY TRACT INFECTION [None]
